FAERS Safety Report 23955905 (Version 1)
Quarter: 2024Q2

REPORT INFORMATION
  Report Type: Spontaneous
  Country: US (occurrence: US)
  Receive Date: 20240610
  Receipt Date: 20240610
  Transmission Date: 20240715
  Serious: Yes (Disabling, Other)
  Sender: FDA-Public Use
  Company Number: US-AMGEN-USASP2024109090

PATIENT

DRUGS (2)
  1. TEPEZZA [Suspect]
     Active Substance: TEPROTUMUMAB-TRBW
     Indication: Endocrine ophthalmopathy
     Dosage: UNK
     Route: 042
     Dates: start: 202206
  2. TEPEZZA [Suspect]
     Active Substance: TEPROTUMUMAB-TRBW
     Indication: Graves^ disease

REACTIONS (10)
  - Deafness permanent [Not Recovered/Not Resolved]
  - Physical disability [Unknown]
  - Endocrine ophthalmopathy [Unknown]
  - Graves^ disease [Unknown]
  - Pain [Unknown]
  - Emotional distress [Unknown]
  - Anxiety [Unknown]
  - Product use complaint [Unknown]
  - Discomfort [Unknown]
  - Tinnitus [Not Recovered/Not Resolved]
